FAERS Safety Report 8234081-4 (Version None)
Quarter: 2012Q1

REPORT INFORMATION
  Report Type: 
  Country: None (occurrence: None)
  Receive Date: 20120326
  Receipt Date: 20120326
  Transmission Date: 20120608
  Serious: Yes (Other)
  Sender: FDA-Public Use
  Company Number: None

PATIENT
  Age: 72 Year
  Sex: Female
  Weight: 81.646 kg

DRUGS (4)
  1. AMINO ACID SUPPLEMENTS [Concomitant]
  2. MULTI-VITAMINS [Concomitant]
  3. D3 [Concomitant]
  4. NABUMETONE [Suspect]
     Indication: ARTHRALGIA
     Dates: start: 20120309, end: 20120323

REACTIONS (4)
  - DYSPNOEA [None]
  - MENTAL IMPAIRMENT [None]
  - MUSCLE FATIGUE [None]
  - DEPRESSION [None]
